FAERS Safety Report 5762070-8 (Version None)
Quarter: 2008Q2

REPORT INFORMATION
  Report Type: 
  Country: None (occurrence: None)
  Receive Date: 20080604
  Receipt Date: 20080515
  Transmission Date: 20081010
  Serious: Yes (Other)
  Sender: FDA-Public Use
  Company Number: 6041368

PATIENT
  Age: 82 Year
  Sex: Female

DRUGS (8)
  1. BISOPROLOL FUMARATE [Suspect]
     Indication: ANGINA PECTORIS
     Dosage: 1.25 MG (1.25 MG, 1 IN 1 D)
     Route: 048
     Dates: start: 20080131, end: 20080220
  2. BISOPROLOL FUMARATE [Suspect]
     Indication: HYPERTENSION
     Dosage: 1.25 MG (1.25 MG, 1 IN 1 D)
     Route: 048
     Dates: start: 20080131, end: 20080220
  3. LISINOPRIL [Concomitant]
  4. FRUMIL (FUROSEMIDE, AMILORIDE HYDROCHLORIDE) [Concomitant]
  5. MIRTAZAPINE [Concomitant]
  6. DELTACOTRIL ENTERIC (PREDNISOLONE) [Concomitant]
  7. LEVOTHYROXINE SODIUM [Concomitant]
  8. LANSOPRAZOLE [Concomitant]

REACTIONS (1)
  - PHOTOSENSITIVITY REACTION [None]
